FAERS Safety Report 6003264-6 (Version None)
Quarter: 2008Q4

REPORT INFORMATION
  Report Type: 
  Country: None (occurrence: None)
  Receive Date: 20081212
  Receipt Date: 20081212
  Transmission Date: 20090506
  Serious: Yes (Hospitalization, Other)
  Sender: FDA-Public Use
  Company Number: None

PATIENT
  Sex: Female
  Weight: 111.1313 kg

DRUGS (2)
  1. LEVAQUIN [Suspect]
     Indication: NEUTROPENIA
     Dosage: 500MG  ONCE PO
     Route: 048
     Dates: start: 20081209, end: 20081209
  2. LEVAQUIN [Suspect]
     Indication: PROPHYLAXIS
     Dosage: 500MG  ONCE PO
     Route: 048
     Dates: start: 20081209, end: 20081209

REACTIONS (7)
  - DEEP VEIN THROMBOSIS [None]
  - HYPOAESTHESIA [None]
  - PARAESTHESIA [None]
  - PULMONARY EMBOLISM [None]
  - RESPIRATORY RATE INCREASED [None]
  - RESTLESSNESS [None]
  - TACHYCARDIA [None]
